FAERS Safety Report 6337287-4 (Version None)
Quarter: 2009Q3

REPORT INFORMATION
  Report Type: 
  Country: None (occurrence: None)
  Receive Date: 20090901
  Receipt Date: 20090901
  Transmission Date: 20100115
  Serious: No
  Sender: FDA-Public Use
  Company Number: None

PATIENT
  Sex: Female
  Weight: 60.3284 kg

DRUGS (2)
  1. LEXISCAN [Suspect]
     Indication: ABASIA
     Dosage: .4MG/5ML - 1 DOSE OVER 20 SECONDS
  2. LEXISCAN [Suspect]
     Indication: ELECTROCARDIOGRAM ABNORMAL
     Dosage: .4MG/5ML - 1 DOSE OVER 20 SECONDS

REACTIONS (3)
  - LIP SWELLING [None]
  - NAUSEA [None]
  - PARAESTHESIA ORAL [None]
